FAERS Safety Report 15232120 (Version 2)
Quarter: 2018Q3

REPORT INFORMATION
  Report Type: Spontaneous
  Country: CN (occurrence: CN)
  Receive Date: 20180802
  Receipt Date: 20180808
  Transmission Date: 20181010
  Serious: Yes (Hospitalization)
  Sender: FDA-Public Use
  Company Number: CN-EISAI MEDICAL RESEARCH-EC-2018-043481

PATIENT
  Age: 86 Year
  Sex: Male
  Weight: 70 kg

DRUGS (1)
  1. ARICEPT [Suspect]
     Active Substance: DONEPEZIL HYDROCHLORIDE
     Indication: VASCULAR DEMENTIA
     Route: 048
     Dates: start: 20180601, end: 20180612

REACTIONS (1)
  - Hallucination [Recovering/Resolving]

NARRATIVE: CASE EVENT DATE: 20180601
